FAERS Safety Report 5167757-6 (Version None)
Quarter: 2006Q4

REPORT INFORMATION
  Report Type: 
  Country: None (occurrence: None)
  Receive Date: 20061204
  Receipt Date: 20061204
  Transmission Date: 20070319
  Serious: No
  Sender: FDA-Public Use
  Company Number: None

PATIENT
  Age: 54 Year
  Sex: Female
  Weight: 68.9467 kg

DRUGS (1)
  1. ENALAPRIL MALEATE 5MG PAR [Suspect]
     Indication: HYPERTENSION
     Dosage: 2 DAY PO
     Route: 048
     Dates: start: 20060901, end: 20061130

REACTIONS (3)
  - HYPOAESTHESIA [None]
  - PAIN [None]
  - PARAESTHESIA [None]
